FAERS Safety Report 14709881 (Version 2)
Quarter: 2018Q2

REPORT INFORMATION
  Report Type: Spontaneous
  Country: US (occurrence: US)
  Receive Date: 20180403
  Receipt Date: 20180521
  Transmission Date: 20180711
  Serious: Yes (Hospitalization, Other)
  Sender: FDA-Public Use
  Company Number: US-OTSUKA-2018_007725

PATIENT
  Age: 35 Year
  Sex: Male

DRUGS (1)
  1. ABILIFY MAINTENA [Suspect]
     Active Substance: ARIPIPRAZOLE
     Indication: SCHIZOPHRENIA
     Dosage: 400 MG, QM (ABOUT 2 YEARS)
     Route: 030
     Dates: start: 2016

REACTIONS (6)
  - Oesophageal disorder [Unknown]
  - Refusal of treatment by patient [Unknown]
  - Aggression [Unknown]
  - Haematemesis [Unknown]
  - Hallucination, auditory [Unknown]
  - Therapeutic response shortened [Unknown]

NARRATIVE: CASE EVENT DATE: 20180226
